FAERS Safety Report 7788581-1 (Version None)
Quarter: 2011Q3

REPORT INFORMATION
  Report Type: 
  Country: None (occurrence: None)
  Receive Date: 20110930
  Receipt Date: 20110920
  Transmission Date: 20111222
  Serious: Yes (Life-Threatening, Hospitalization, Other)
  Sender: FDA-Public Use
  Company Number: JP-JNJFOC-20110811931

PATIENT
  Sex: Female

DRUGS (2)
  1. LEVOFLOXACIN [Suspect]
     Indication: TONSILLITIS
     Route: 048
     Dates: start: 20110820, end: 20110820
  2. LEVOFLOXACIN [Suspect]
     Indication: PHARYNGITIS
     Route: 048
     Dates: start: 20110820, end: 20110820

REACTIONS (3)
  - ACUTE PULMONARY OEDEMA [None]
  - RESPIRATORY FAILURE [None]
  - DRUG ERUPTION [None]
